FAERS Safety Report 25310302 (Version 2)
Quarter: 2025Q2

REPORT INFORMATION
  Report Type: Spontaneous
  Country: US (occurrence: US)
  Receive Date: 20250514
  Receipt Date: 20250528
  Transmission Date: 20250717
  Serious: Yes (Other)
  Sender: EMCURE PHARMACEUTICALS LTD
  Company Number: US-AVET LIFESCIENCES LTD-2025-AVET-000139

PATIENT

DRUGS (13)
  1. PROPOFOL [Suspect]
     Active Substance: PROPOFOL
     Indication: Arthroscopy
     Dates: start: 20250418
  2. DEXMEDETOMIDINE [Concomitant]
     Active Substance: DEXMEDETOMIDINE
  3. DIAZEPAM [Concomitant]
     Active Substance: DIAZEPAM
  4. MIDAZOLAM [Concomitant]
     Active Substance: MIDAZOLAM
  5. FENTANYL [Concomitant]
     Active Substance: FENTANYL
  6. HYDROMORPHONE [Concomitant]
     Active Substance: HYDROMORPHONE
  7. ONDANSETRON [Concomitant]
     Active Substance: ONDANSETRON
  8. ACETAMINOPHEN [Concomitant]
     Active Substance: ACETAMINOPHEN
  9. CEFAZOLIN [Concomitant]
     Active Substance: CEFAZOLIN
  10. CLONIDINE [Concomitant]
     Active Substance: CLONIDINE
  11. DEXAMETHASONE [Concomitant]
     Active Substance: DEXAMETHASONE
  12. KETOROLAC [Concomitant]
     Active Substance: KETOROLAC TROMETHAMINE
  13. ROPIVACAINE [Concomitant]
     Active Substance: ROPIVACAINE

REACTIONS (1)
  - Drug ineffective [Unknown]

NARRATIVE: CASE EVENT DATE: 20250418
